FAERS Safety Report 17711188 (Version 1)
Quarter: 2020Q2

REPORT INFORMATION
  Report Type: Spontaneous
  Country: US (occurrence: US)
  Receive Date: 20200427
  Receipt Date: 20200427
  Transmission Date: 20200714
  Serious: No
  Sender: FDA-Public Use
  Company Number: US-PFIZER INC-2020166635

PATIENT
  Age: 80 Year
  Sex: Female

DRUGS (1)
  1. XELJANZ [Suspect]
     Active Substance: TOFACITINIB CITRATE
     Dosage: 5 MG, 2X/DAY (XELJANZ 5 MG PO (PER ORAL) BID (TWICE A DAY)
     Route: 048
     Dates: start: 20190726, end: 20200415

REACTIONS (1)
  - White blood cell count decreased [Unknown]
